FAERS Safety Report 18586847 (Version 2)
Quarter: 2021Q3

REPORT INFORMATION
  Report Type: Spontaneous
  Country: US (occurrence: US)
  Receive Date: 20201207
  Receipt Date: 20210924
  Transmission Date: 20211014
  Serious: Yes (Hospitalization)
  Sender: FDA-Public Use
  Company Number: US-VERTEX PHARMACEUTICALS-2020-023879

PATIENT
  Age: 34 Year
  Sex: Male

DRUGS (5)
  1. AFRIN [PHENYLEPHRINE HYDROCHLORIDE] [Concomitant]
     Active Substance: PHENYLEPHRINE HYDROCHLORIDE
  2. TOBRAMYCIN. [Concomitant]
     Active Substance: TOBRAMYCIN
  3. TRIKAFTA [Suspect]
     Active Substance: ELEXACAFTOR\IVACAFTOR\TEZACAFTOR
     Indication: CYSTIC FIBROSIS
     Dosage: 2 ORANGE TABS(100MG ELEXACAFTOR/50MG TEZACAFTOR/75MG IVACAFTOR)AM;1 BLUE TAB(150MG IVACAFTOR)PM
     Route: 048
     Dates: start: 20191204
  4. PULMOZYME [Concomitant]
     Active Substance: DORNASE ALFA
  5. IBUPROFEN. [Concomitant]
     Active Substance: IBUPROFEN

REACTIONS (6)
  - Necrosis [Recovered/Resolved]
  - Leg amputation [Recovered/Resolved]
  - Finger amputation [Recovered/Resolved]
  - Pneumonia [Recovered/Resolved]
  - Pneumococcal sepsis [Recovered/Resolved]
  - Toe amputation [Recovered/Resolved]

NARRATIVE: CASE EVENT DATE: 20191226
